FAERS Safety Report 20304973 (Version 1)
Quarter: 2022Q1

REPORT INFORMATION
  Report Type: Spontaneous
  Country: None (occurrence: DK)
  Receive Date: 20220106
  Receipt Date: 20220106
  Transmission Date: 20220423
  Serious: Yes (Other)
  Sender: FDA-Public Use
  Company Number: DK-CLINUVEL INC-2123668

PATIENT
  Age: 20 Year
  Sex: Male

DRUGS (3)
  1. SCENESSE [Suspect]
     Active Substance: AFAMELANOTIDE
     Indication: Porphyria non-acute
     Route: 058
     Dates: start: 20210816, end: 20210816
  2. OMALIZUMAB [Concomitant]
     Active Substance: OMALIZUMAB
     Route: 058
     Dates: start: 20210806, end: 20210806
  3. PREDNISONE [Concomitant]
     Active Substance: PREDNISONE
     Route: 048
     Dates: start: 20210815, end: 20210817

REACTIONS (2)
  - Type I hypersensitivity [Recovered/Resolved]
  - Contraindication to medical treatment [Recovered/Resolved]

NARRATIVE: CASE EVENT DATE: 20210816
